FAERS Safety Report 11106720 (Version 2)
Quarter: 2015Q2

REPORT INFORMATION
  Report Type: Spontaneous
  Country: US (occurrence: US)
  Receive Date: 20150512
  Receipt Date: 20150629
  Transmission Date: 20150821
  Serious: No
  Sender: FDA-Public Use
  Company Number: US-PFIZER INC-2015124397

PATIENT
  Age: 66 Year
  Sex: Male

DRUGS (4)
  1. PREDNISONE. [Concomitant]
     Active Substance: PREDNISONE
     Dosage: 5 MG, UNK
     Dates: start: 201502
  2. ZYRTEC [Concomitant]
     Active Substance: CETIRIZINE HYDROCHLORIDE
     Dosage: 10 MG, UNK
     Dates: start: 201502
  3. INLYTA [Suspect]
     Active Substance: AXITINIB
     Indication: RENAL CANCER
     Dosage: 10 MG, 2X/DAY
     Dates: start: 20150303, end: 20150408
  4. XGEVA [Suspect]
     Active Substance: DENOSUMAB
     Dosage: UNK

REACTIONS (12)
  - Exposed bone in jaw [Recovering/Resolving]
  - Gait disturbance [Unknown]
  - Disease progression [Unknown]
  - Speech disorder [Recovered/Resolved]
  - Asthenia [Unknown]
  - Dysphonia [Unknown]
  - Hypophagia [Unknown]
  - Dyspnoea [Unknown]
  - Renal cancer [Unknown]
  - Glossodynia [Unknown]
  - Weight decreased [Unknown]
  - Stomatitis [Unknown]
